FAERS Safety Report 20040441 (Version 1)
Quarter: 2021Q4

REPORT INFORMATION
  Report Type: Spontaneous
  Country: CA (occurrence: None)
  Receive Date: 20211104
  Receipt Date: 20211104
  Transmission Date: 20220303
  Serious: Yes (Other)
  Sender: FDA-Public Use
  Company Number: None

PATIENT
  Age: 89 Year
  Sex: Female
  Weight: 56.7 kg

DRUGS (16)
  1. INDAPAMIDE [Suspect]
     Active Substance: INDAPAMIDE
     Indication: Product used for unknown indication
     Dosage: OTHER QUANTITY : 1.25 MG MILLIGRAM(S);?FREQUENCY : DAILY;?
     Route: 048
     Dates: start: 20211102
  2. PERINDOPRIL [Concomitant]
     Active Substance: PERINDOPRIL
  3. AMLODIPINE [Concomitant]
     Active Substance: AMLODIPINE BESYLATE
  4. IODINE [Concomitant]
     Active Substance: IODINE
  5. VITAMIN D [Concomitant]
     Active Substance: VITAMIN D NOS
  6. GARLIC [Concomitant]
     Active Substance: GARLIC
  7. LUTEIN [Concomitant]
     Active Substance: LUTEIN
  8. Niacine [Concomitant]
  9. VITAMIN E [Concomitant]
     Active Substance: .ALPHA.-TOCOPHEROL
  10. DIETARY SUPPLEMENT\UBIDECARENONE [Concomitant]
     Active Substance: DIETARY SUPPLEMENT\UBIDECARENONE
  11. BUFFERED C [Concomitant]
  12. Cal mag [Concomitant]
  13. TAURINE [Concomitant]
     Active Substance: TAURINE
  14. Malatone [Concomitant]
  15. Amway Vitamins [Concomitant]
  16. FISH OIL [Concomitant]
     Active Substance: FISH OIL

REACTIONS (3)
  - Dyspnoea [None]
  - Urinary tract disorder [None]
  - Peripheral swelling [None]

NARRATIVE: CASE EVENT DATE: 20211102
